FAERS Safety Report 9997572 (Version 1)
Quarter: 2014Q1

REPORT INFORMATION
  Report Type: Spontaneous
  Country: US (occurrence: None)
  Receive Date: 20140228
  Receipt Date: 20140228
  Transmission Date: 20141002
  Serious: Yes (Other)
  Sender: FDA-Public Use
  Company Number: US-JNJFOC-20131011472

PATIENT
  Age: 11 Year
  Sex: Female
  Weight: 48.54 kg

DRUGS (1)
  1. MOTRIN [Suspect]
     Indication: PYREXIA
     Dosage: UNK, ORAL
     Route: 048
     Dates: start: 20131017

REACTIONS (1)
  - Blood glucose increased [None]
